APPROVED DRUG PRODUCT: REYVOW
Active Ingredient: LASMIDITAN SUCCINATE
Strength: EQ 50MG BASE
Dosage Form/Route: TABLET;ORAL
Application: N211280 | Product #001
Applicant: ELI LILLY AND CO
Approved: Jan 31, 2020 | RLD: Yes | RS: No | Type: RX

PATENTS:
Patent 7423050 | Expires: Feb 17, 2028
Patent 12257246 | Expires: Jul 7, 2030
Patent 11053214 | Expires: Dec 5, 2037
Patent 12071423 | Expires: Jul 6, 2040